FAERS Safety Report 20777683 (Version 4)
Quarter: 2022Q2

REPORT INFORMATION
  Report Type: Spontaneous
  Country: US (occurrence: US)
  Receive Date: 20220503
  Receipt Date: 20220621
  Transmission Date: 20220721
  Serious: Yes (Death, Other)
  Sender: FDA-Public Use
  Company Number: US-GILEAD-2022-0579871

PATIENT
  Age: 8 Year
  Sex: Male

DRUGS (1)
  1. AMBISOME [Suspect]
     Active Substance: AMPHOTERICIN B
     Indication: Histoplasmosis
     Dosage: UNK UNK, UNKNOWN FREQ.(STARTED ON DAY SEVEN OF ADMISSION)
     Route: 065

REACTIONS (8)
  - Shock haemorrhagic [Fatal]
  - Hepatic failure [Fatal]
  - Gastrointestinal necrosis [Fatal]
  - Histoplasmosis disseminated [Fatal]
  - Respiratory distress [Unknown]
  - Haematochezia [Unknown]
  - Mental status changes [Unknown]
  - Off label use [Unknown]
